FAERS Safety Report 25770786 (Version 1)
Quarter: 2025Q3

REPORT INFORMATION
  Report Type: Report from Study
  Country: US (occurrence: US)
  Receive Date: 20250908
  Receipt Date: 20250908
  Transmission Date: 20251020
  Serious: Yes (Other)
  Sender: TAKEDA
  Company Number: US-TAKEDA-2025TUS048961

PATIENT
  Sex: Male

DRUGS (4)
  1. MARIBAVIR [Suspect]
     Active Substance: MARIBAVIR
     Indication: Cytomegalovirus infection
     Dosage: 400 MILLIGRAM, BID
  2. MARIBAVIR [Suspect]
     Active Substance: MARIBAVIR
     Dosage: 400 MILLIGRAM, BID
     Dates: start: 202502, end: 202507
  3. COPIKTRA [Concomitant]
     Active Substance: DUVELISIB
     Dosage: 25 MILLIGRAM, BID
  4. LETERMOVIR [Concomitant]
     Active Substance: LETERMOVIR

REACTIONS (2)
  - Cytopenia [Unknown]
  - Full blood count decreased [Unknown]
